FAERS Safety Report 25263676 (Version 2)
Quarter: 2025Q2

REPORT INFORMATION
  Report Type: Spontaneous
  Country: JP (occurrence: JP)
  Receive Date: 20250502
  Receipt Date: 20250602
  Transmission Date: 20250716
  Serious: Yes (Other)
  Sender: PFIZER
  Company Number: JP-PFIZER INC-PV202500052067

PATIENT
  Age: 76 Year
  Sex: Female

DRUGS (2)
  1. ELREXFIO [Suspect]
     Active Substance: ELRANATAMAB-BCMM
     Indication: Plasma cell myeloma refractory
     Route: 058
  2. DECADRON [Suspect]
     Active Substance: DEXAMETHASONE

REACTIONS (2)
  - Cytokine release syndrome [Recovered/Resolved]
  - Delirium [Unknown]
